FAERS Safety Report 10107221 (Version 2)
Quarter: 2014Q2

REPORT INFORMATION
  Report Type: Spontaneous
  Country: AU (occurrence: AU)
  Receive Date: 20140424
  Receipt Date: 20140424
  Transmission Date: 20141212
  Serious: Yes (Other)
  Sender: FDA-Public Use
  Company Number: PHHY2014AU046436

PATIENT
  Sex: 0

DRUGS (1)
  1. GILENYA [Suspect]
     Indication: RELAPSING-REMITTING MULTIPLE SCLEROSIS
     Route: 048

REACTIONS (4)
  - Atrial fibrillation [Unknown]
  - Bradycardia [Recovered/Resolved]
  - Lymphopenia [Recovered/Resolved]
  - Paronychia [Recovered/Resolved]
